FAERS Safety Report 14798570 (Version 1)
Quarter: 2018Q2

REPORT INFORMATION
  Report Type: Spontaneous
  Country: US (occurrence: US)
  Receive Date: 20180415
  Receipt Date: 20180415
  Transmission Date: 20180711
  Serious: No
  Sender: FDA-Public Use
  Company Number: None

PATIENT
  Age: 41 Year
  Sex: Female
  Weight: 24.75 kg

DRUGS (4)
  1. CALCIUM [Concomitant]
     Active Substance: CALCIUM
  2. BIOTIN [Concomitant]
     Active Substance: BIOTIN
  3. TRILUMA [Suspect]
     Active Substance: HYDROQUINONE
     Indication: CHLOASMA
     Dosage: ?          QUANTITY:1 TUBE;?
     Route: 062
     Dates: start: 20180202, end: 20180408
  4. C [Concomitant]

REACTIONS (2)
  - Condition aggravated [None]
  - Chloasma [None]

NARRATIVE: CASE EVENT DATE: 20180411
